FAERS Safety Report 24607264 (Version 2)
Quarter: 2024Q4

REPORT INFORMATION
  Report Type: Report from Study
  Country: DE (occurrence: DE)
  Receive Date: 20241112
  Receipt Date: 20241202
  Transmission Date: 20250115
  Serious: Yes (Hospitalization)
  Sender: ABBVIE
  Company Number: DE-ABBVIE-5996299

PATIENT
  Age: 81 Year
  Sex: Female
  Weight: 43 kg

DRUGS (2)
  1. CARBIDOPA\LEVODOPA [Suspect]
     Active Substance: CARBIDOPA\LEVODOPA
     Indication: Parkinson^s disease
     Dosage: MD: 6,0ML; CRT: 2,8ML/H; ED: 1,0ML
     Route: 050
     Dates: start: 20231207
  2. CARBIDOPA\LEVODOPA [Suspect]
     Active Substance: CARBIDOPA\LEVODOPA

REACTIONS (1)
  - Hyperkinesia [Recovered/Resolved]

NARRATIVE: CASE EVENT DATE: 20241001
